FAERS Safety Report 12263734 (Version 1)
Quarter: 2016Q2

REPORT INFORMATION
  Report Type: Other
  Country: CA (occurrence: CA)
  Receive Date: 20160413
  Receipt Date: 20160413
  Transmission Date: 20160815
  Serious: Yes (Other)
  Sender: FDA-Public Use
  Company Number: CA-ASTELLAS-2016US013343

PATIENT
  Age: 49 Year
  Sex: Female
  Weight: 100 kg

DRUGS (1)
  1. ADVAGRAF [Suspect]
     Active Substance: TACROLIMUS
     Indication: PROPHYLAXIS AGAINST TRANSPLANT REJECTION
     Route: 048

REACTIONS (4)
  - Joint swelling [Recovered/Resolved]
  - Insomnia [Recovered/Resolved]
  - Emotional disorder [Recovered/Resolved]
  - Pain in extremity [Recovered/Resolved]
